FAERS Safety Report 7788531-8 (Version None)
Quarter: 2011Q3

REPORT INFORMATION
  Report Type: 
  Country: None (occurrence: None)
  Receive Date: 20110930
  Receipt Date: 20110927
  Transmission Date: 20111222
  Serious: Yes (Death)
  Sender: FDA-Public Use
  Company Number: PHHY2011JP85919

PATIENT
  Age: 86 Year
  Sex: Male

DRUGS (2)
  1. EXELON [Suspect]
     Indication: DEMENTIA
     Dosage: 13.5 MG, UNK
     Route: 062
     Dates: start: 20110701, end: 20110901
  2. EXELON [Suspect]
     Dosage: UNK UKN, UNK
     Route: 062
     Dates: start: 20110925

REACTIONS (2)
  - PULMONARY TUBERCULOSIS [None]
  - RESPIRATORY FAILURE [None]
